FAERS Safety Report 9523001 (Version 2)
Quarter: 2013Q4

REPORT INFORMATION
  Report Type: Spontaneous
  Country: GB (occurrence: GB)
  Receive Date: 20130913
  Receipt Date: 20131209
  Transmission Date: 20140711
  Serious: Yes (Life-Threatening, Hospitalization, Other)
  Sender: FDA-Public Use
  Company Number: GB-TEVA-430082ISR

PATIENT
  Age: 61 Year
  Sex: Male
  Weight: 60 kg

DRUGS (7)
  1. BICALUTAMIDE [Suspect]
     Indication: PROSTATE CANCER
     Route: 048
     Dates: start: 20130715, end: 20130819
  2. OMEPRAZOLE [Concomitant]
  3. IBUPROFEN [Concomitant]
  4. THIAMINE [Concomitant]
  5. PARACETAMOL [Concomitant]
  6. ZOLADEX LA [Concomitant]
  7. SEVREDOL [Concomitant]

REACTIONS (4)
  - Subdural haematoma [Fatal]
  - Bone marrow failure [Not Recovered/Not Resolved]
  - Sepsis [Unknown]
  - Coagulopathy [Not Recovered/Not Resolved]
